FAERS Safety Report 25576813 (Version 1)
Quarter: 2025Q3

REPORT INFORMATION
  Report Type: Spontaneous
  Country: GB (occurrence: GB)
  Receive Date: 20250718
  Receipt Date: 20250718
  Transmission Date: 20251021
  Serious: Yes (Other)
  Sender: RANBAXY
  Company Number: GB-MHRA-TPP20963411C11113354YC1751557447801

PATIENT
  Age: 85 Year
  Sex: Male
  Weight: 80 kg

DRUGS (18)
  1. RIVAROXABAN [Suspect]
     Active Substance: RIVAROXABAN
     Indication: Product used for unknown indication
     Dosage: 20 MILLIGRAM, DAILY TAKE ONE DAILY WITH FOOD.
     Route: 065
     Dates: start: 20250528
  2. PREDNISOLONE [Concomitant]
     Active Substance: PREDNISOLONE
     Indication: Ill-defined disorder
     Route: 065
     Dates: start: 20250606, end: 20250611
  3. NORMASOL [Concomitant]
     Indication: Ill-defined disorder
     Route: 065
     Dates: start: 20250624, end: 20250625
  4. NURSE IT [Concomitant]
     Indication: Ill-defined disorder
     Route: 065
     Dates: start: 20250624, end: 20250625
  5. 2-HYDROXYETHYL METHACRYLATE\DEVICE [Concomitant]
     Active Substance: 2-HYDROXYETHYL METHACRYLATE\DEVICE
     Indication: Ill-defined disorder
     Route: 065
     Dates: start: 20250624, end: 20250625
  6. AMLODIPINE [Concomitant]
     Active Substance: AMLODIPINE BESYLATE
     Indication: Ill-defined disorder
     Route: 065
     Dates: start: 20241216
  7. CLINIPEEL [Concomitant]
     Indication: Ill-defined disorder
     Route: 065
     Dates: start: 20241216
  8. COMFIZZ LEVEL III [Concomitant]
     Indication: Ill-defined disorder
     Route: 065
     Dates: start: 20241216
  9. DIGOXIN [Concomitant]
     Active Substance: DIGOXIN
     Indication: Ill-defined disorder
     Route: 065
     Dates: start: 20241216
  10. EDOXABAN [Concomitant]
     Active Substance: EDOXABAN
     Indication: Ill-defined disorder
     Route: 065
     Dates: start: 20241216, end: 20250528
  11. LBF [Concomitant]
     Indication: Ill-defined disorder
     Route: 065
     Dates: start: 20241216
  12. LOPERAMIDE [Concomitant]
     Active Substance: LOPERAMIDE
     Indication: Ill-defined disorder
     Route: 065
     Dates: start: 20241216
  13. LOSARTAN [Concomitant]
     Active Substance: LOSARTAN
     Indication: Ill-defined disorder
     Route: 065
     Dates: start: 20241216
  14. MEDI DERMA-S [Concomitant]
     Indication: Ill-defined disorder
     Route: 065
     Dates: start: 20241216
  15. NEBIVOLOL [Concomitant]
     Active Substance: NEBIVOLOL
     Indication: Ill-defined disorder
     Route: 065
     Dates: start: 20241216
  16. NOVALIFE TRE 1 OPEN [Concomitant]
     Indication: Ill-defined disorder
     Route: 065
     Dates: start: 20241216
  17. CALCIUM CARBONATE\CHOLECALCIFEROL [Concomitant]
     Active Substance: CALCIUM CARBONATE\CHOLECALCIFEROL
     Indication: Ill-defined disorder
     Route: 065
     Dates: start: 20241216
  18. APIXABAN [Concomitant]
     Active Substance: APIXABAN
     Indication: Ill-defined disorder
     Route: 065

REACTIONS (2)
  - Dry mouth [Unknown]
  - Weight decreased [Unknown]
